FAERS Safety Report 12539194 (Version 2)
Quarter: 2016Q3

REPORT INFORMATION
  Report Type: Spontaneous
  Country: US (occurrence: US)
  Receive Date: 20160708
  Receipt Date: 20160914
  Transmission Date: 20161109
  Serious: Yes (Other)
  Sender: FDA-Public Use
  Company Number: US-ASTRAZENECA-2016SE61266

PATIENT
  Age: 63 Year
  Sex: Female
  Weight: 81.2 kg

DRUGS (6)
  1. GLIBURIDE [Concomitant]
     Indication: TYPE 2 DIABETES MELLITUS
     Route: 048
     Dates: start: 2008
  2. BENECAR [Concomitant]
     Route: 048
     Dates: start: 2008
  3. METFORMIN [Concomitant]
     Active Substance: METFORMIN HYDROCHLORIDE
     Indication: TYPE 2 DIABETES MELLITUS
     Dosage: 1000, EVERY 12 HOURS
     Route: 048
     Dates: start: 2008
  4. VITAMINS [Concomitant]
     Active Substance: VITAMINS
     Indication: ALOPECIA
     Dosage: DAILY
  5. BYETTA [Suspect]
     Active Substance: EXENATIDE
     Indication: DIABETES MELLITUS
     Dosage: 2.4ML UNKNOWN
     Route: 058
     Dates: start: 2012
  6. BYETTA [Suspect]
     Active Substance: EXENATIDE
     Indication: DIABETES MELLITUS
     Dosage: 10 MG UNKNOWN
     Route: 058
     Dates: start: 201605

REACTIONS (3)
  - Device issue [Unknown]
  - Hyperglycaemia [Unknown]
  - Tremor [Unknown]

NARRATIVE: CASE EVENT DATE: 2016
